FAERS Safety Report 7644917-3 (Version None)
Quarter: 2011Q3

REPORT INFORMATION
  Report Type: 
  Country: None (occurrence: None)
  Receive Date: 20110729
  Receipt Date: 20110712
  Transmission Date: 20111222
  Serious: Yes (Hospitalization)
  Sender: FDA-Public Use
  Company Number: US-GLAXOSMITHKLINE-A0748417A

PATIENT
  Age: 66 Year
  Sex: Female
  Weight: 61.4 kg

DRUGS (2)
  1. AVANDIA [Suspect]
     Indication: TYPE 2 DIABETES MELLITUS
     Dosage: 4MG PER DAY
     Route: 048
     Dates: start: 20050501, end: 20061201
  2. AVANDAMET [Suspect]
     Indication: TYPE 2 DIABETES MELLITUS
     Route: 048
     Dates: start: 20031216, end: 20070501

REACTIONS (3)
  - ARTERIOSCLEROSIS [None]
  - MYOCARDIAL INFARCTION [None]
  - HEART INJURY [None]
